FAERS Safety Report 19350247 (Version 1)
Quarter: 2021Q2

REPORT INFORMATION
  Report Type: Spontaneous
  Country: CH (occurrence: CH)
  Receive Date: 20210531
  Receipt Date: 20210531
  Transmission Date: 20210717
  Serious: Yes (Hospitalization, Other)
  Sender: FDA-Public Use
  Company Number: CH-JNJFOC-20210557383

PATIENT
  Age: 27 Year
  Sex: Female

DRUGS (3)
  1. YONDELIS [Suspect]
     Active Substance: TRABECTEDIN
     Dosage: CYCLE 2, DOSAGE REDUCED TO 90%
     Route: 042
     Dates: start: 20210203
  2. YONDELIS [Suspect]
     Active Substance: TRABECTEDIN
     Indication: MYXOID LIPOSARCOMA
     Dosage: FIRST CYCLE; 1D PUMP
     Route: 042
     Dates: start: 20210115
  3. YONDELIS [Suspect]
     Active Substance: TRABECTEDIN
     Dosage: CYCLE 3
     Route: 042
     Dates: start: 20210225

REACTIONS (2)
  - Pancytopenia [Recovering/Resolving]
  - Drug-induced liver injury [Recovering/Resolving]

NARRATIVE: CASE EVENT DATE: 20210308
